FAERS Safety Report 8359051-7 (Version None)
Quarter: 2012Q2

REPORT INFORMATION
  Report Type: 
  Country: None (occurrence: None)
  Receive Date: 20120515
  Receipt Date: 20120508
  Transmission Date: 20120825
  Serious: No
  Sender: FDA-Public Use
  Company Number: US-BIOGENIDEC-2012BI016362

PATIENT
  Age: 38 Year
  Sex: Female

DRUGS (1)
  1. TYSABRI [Suspect]
     Indication: MULTIPLE SCLEROSIS
     Route: 042
     Dates: start: 20100122

REACTIONS (8)
  - TINNITUS [None]
  - NIGHTMARE [None]
  - FATIGUE [None]
  - PAIN [None]
  - INSOMNIA [None]
  - ASTHENIA [None]
  - HEADACHE [None]
  - FUNGAL INFECTION [None]
